FAERS Safety Report 7386601-X (Version None)
Quarter: 2011Q1

REPORT INFORMATION
  Report Type: 
  Country: None (occurrence: None)
  Receive Date: 20110331
  Receipt Date: 20110324
  Transmission Date: 20110831
  Serious: Yes (Death)
  Sender: FDA-Public Use
  Company Number: JP-ROCHE-767777

PATIENT
  Age: 65 Year
  Sex: Female
  Weight: 53 kg

DRUGS (2)
  1. PEGASYS [Suspect]
     Dosage: DOSAGE IS UNCERTAIN
     Route: 058
  2. COPEGUS [Suspect]
     Dosage: DOSAGE IS UNCERTAIN
     Route: 048

REACTIONS (4)
  - BLOOD TEST ABNORMAL [None]
  - BLOOD DISORDER [None]
  - PELVIC MASS [None]
  - OEDEMA [None]
